FAERS Safety Report 4375356-9 (Version None)
Quarter: 2004Q2

REPORT INFORMATION
  Report Type: 
  Country: None (occurrence: None)
  Receive Date: 20040607
  Receipt Date: 20040525
  Transmission Date: 20050107
  Serious: Yes (Hospitalization)
  Sender: FDA-Public Use
  Company Number: 163-20785-03090619

PATIENT
  Age: 8 Year
  Sex: Male

DRUGS (6)
  1. THALOMID [Suspect]
     Indication: JUVENILE ARTHRITIS
     Dosage: 50 MG DAILY ORAL
     Route: 048
     Dates: start: 20030701, end: 20030901
  2. INFLIXIMAB [Concomitant]
  3. METHOTREXATE [Concomitant]
  4. FOLIC ACID [Concomitant]
  5. NAPROSYN [Concomitant]
  6. PREDNISONE [Concomitant]

REACTIONS (3)
  - BENIGN INTRACRANIAL HYPERTENSION [None]
  - VITH NERVE PARALYSIS [None]
  - WEIGHT INCREASED [None]
